FAERS Safety Report 12298882 (Version 3)
Quarter: 2017Q3

REPORT INFORMATION
  Report Type: Spontaneous
  Country: CA (occurrence: CA)
  Receive Date: 20160425
  Receipt Date: 20170724
  Transmission Date: 20171127
  Serious: Yes (Other)
  Sender: FDA-Public Use
  Company Number: CA-ROCHE-1745502

PATIENT
  Sex: Male

DRUGS (7)
  1. IBUPROFEN. [Concomitant]
     Active Substance: IBUPROFEN
     Dosage: AS REQUIRED
     Route: 065
  2. ALEVE [Concomitant]
     Active Substance: NAPROXEN SODIUM
     Dosage: AS REQUIRED
     Route: 065
  3. VENTOLIN [Concomitant]
     Active Substance: ALBUTEROL SULFATE
     Route: 055
  4. CELLCEPT [Suspect]
     Active Substance: MYCOPHENOLATE MOFETIL\MYCOPHENOLATE MOFETIL HYDROCHLORIDE
     Indication: PEMPHIGUS
     Route: 048
  5. MOMETASONE FUROATE. [Concomitant]
     Active Substance: MOMETASONE FUROATE
  6. PREDNISONE. [Concomitant]
     Active Substance: PREDNISONE
  7. RITUXAN [Suspect]
     Active Substance: RITUXIMAB
     Indication: PEMPHIGUS
     Dosage: DAY 1 AND DAY 15
     Route: 042
     Dates: start: 20160829

REACTIONS (11)
  - Pemphigus [Not Recovered/Not Resolved]
  - Gingival bleeding [Unknown]
  - Oropharyngeal pain [Unknown]
  - Therapeutic response shortened [Unknown]
  - Skin erosion [Not Recovered/Not Resolved]
  - Epistaxis [Unknown]
  - Skin ulcer [Not Recovered/Not Resolved]
  - Haemoptysis [Unknown]
  - Oral mucosa erosion [Not Recovered/Not Resolved]
  - Disease progression [Unknown]
  - Mouth ulceration [Not Recovered/Not Resolved]
